FAERS Safety Report 7867507-6 (Version None)
Quarter: 2011Q4

REPORT INFORMATION
  Report Type: 
  Country: None (occurrence: None)
  Receive Date: 20111028
  Receipt Date: 20111014
  Transmission Date: 20120403
  Serious: Yes (Hospitalization)
  Sender: FDA-Public Use
  Company Number: PHHY2011DE91605

PATIENT
  Sex: Female

DRUGS (2)
  1. VIREAD [Suspect]
     Dosage: 245 MG, QD
  2. CERTICAN [Suspect]

REACTIONS (3)
  - POLYNEUROPATHY [None]
  - CARDIAC DISORDER [None]
  - DIARRHOEA [None]
